FAERS Safety Report 4726647-0 (Version None)
Quarter: 2005Q3

REPORT INFORMATION
  Report Type: 
  Country: None (occurrence: None)
  Receive Date: 20050725
  Receipt Date: 20050509
  Transmission Date: 20060218
  Serious: No
  Sender: FDA-Public Use
  Company Number: US_0505117682

PATIENT
  Age: 9 Year
  Sex: Male

DRUGS (3)
  1. STRATTERA [Suspect]
  2. CONCERTA [Concomitant]
  3. RITALIN [Concomitant]

REACTIONS (2)
  - ABNORMAL BEHAVIOUR [None]
  - WEIGHT INCREASED [None]
